FAERS Safety Report 4565933-4 (Version None)
Quarter: 2005Q1

REPORT INFORMATION
  Report Type: 
  Country: None (occurrence: None)
  Receive Date: 20050128
  Receipt Date: 20050120
  Transmission Date: 20050727
  Serious: Yes (Hospitalization)
  Sender: FDA-Public Use
  Company Number: 2005CG00166

PATIENT
  Age: 41 Year
  Sex: Female

DRUGS (5)
  1. SYMBICORT TURBUHALER ^DRACO^ [Suspect]
     Indication: ASTHMA
     Dosage: 2 DF DAILY IH
     Route: 055
     Dates: end: 20041118
  2. ZOLOFT [Suspect]
     Indication: DEPRESSION
     Dosage: 1 DF DAILY PO
     Route: 048
     Dates: end: 20041118
  3. AERIUS [Suspect]
     Indication: ASTHMA
     Dosage: 1 DF DAILY PO
     Route: 048
     Dates: end: 20041118
  4. NMESIS [Suspect]
     Indication: FRIEDREICH'S ATAXIA
     Dosage: 1 DF TID PO
     Route: 048
     Dates: end: 20040101
  5. MNESIS [Suspect]
     Indication: FRIEDREICH'S ATAXIA
     Dosage: 3 DF TID PO
     Route: 048
     Dates: start: 20040101, end: 20041118

REACTIONS (3)
  - CONFUSIONAL STATE [None]
  - DELIRIUM [None]
  - SOMNOLENCE [None]
